FAERS Safety Report 16821762 (Version 1)
Quarter: 2019Q3

REPORT INFORMATION
  Report Type: Spontaneous
  Country: FR (occurrence: FR)
  Receive Date: 20190918
  Receipt Date: 20190918
  Transmission Date: 20191005
  Serious: Yes (Hospitalization)
  Sender: FDA-Public Use
  Company Number: FR-SA-2019SA253942

PATIENT
  Age: 56 Year
  Sex: Male

DRUGS (4)
  1. LOVENOX [Suspect]
     Active Substance: ENOXAPARIN SODIUM
     Indication: MYOCARDIAL INFARCTION
     Dosage: 8000 IU, QD
     Route: 042
     Dates: start: 20190804, end: 20190804
  2. PLAVIX [Suspect]
     Active Substance: CLOPIDOGREL BISULFATE
     Indication: MYOCARDIAL INFARCTION
     Dosage: 300 MG, QD
     Route: 048
     Dates: start: 20190804, end: 20190804
  3. METALYSE [Suspect]
     Active Substance: TENECTEPLASE
     Indication: MYOCARDIAL INFARCTION
     Dosage: UNK
     Route: 042
     Dates: start: 20190804, end: 20190804
  4. ASPEGIC ENFANTS [Suspect]
     Active Substance: ASPIRIN DL-LYSINE
     Indication: MYOCARDIAL INFARCTION
     Dosage: 250 MG, QD
     Route: 048
     Dates: start: 20190804, end: 20190804

REACTIONS (3)
  - Hemiplegia [Not Recovered/Not Resolved]
  - Facial paralysis [Recovering/Resolving]
  - Cerebral haematoma [Not Recovered/Not Resolved]

NARRATIVE: CASE EVENT DATE: 20190804
